FAERS Safety Report 12963277 (Version 1)
Quarter: 2016Q4

REPORT INFORMATION
  Report Type: Report from Study
  Country: US (occurrence: US)
  Receive Date: 20161122
  Receipt Date: 20161122
  Transmission Date: 20170207
  Serious: Yes (Other)
  Sender: FDA-Public Use
  Company Number: US-AMGEN-USASL2016162796

PATIENT
  Age: 56 Year
  Sex: Male

DRUGS (2)
  1. ENBREL [Suspect]
     Active Substance: ETANERCEPT
     Indication: PSORIATIC ARTHROPATHY
     Dosage: 50 MG, QWK
     Route: 065
     Dates: start: 2008
  2. ENBREL [Suspect]
     Active Substance: ETANERCEPT
     Indication: PSORIASIS

REACTIONS (8)
  - Pain [Unknown]
  - Diabetes mellitus [Unknown]
  - Limb injury [Unknown]
  - Drug dose omission [Unknown]
  - Hypertension [Unknown]
  - Cardiac disorder [Unknown]
  - Mobility decreased [Unknown]
  - Psoriasis [Not Recovered/Not Resolved]
